FAERS Safety Report 22718346 (Version 4)
Quarter: 2024Q4

REPORT INFORMATION
  Report Type: Spontaneous
  Country: US (occurrence: US)
  Receive Date: 20230718
  Receipt Date: 20241117
  Transmission Date: 20250114
  Serious: No
  Sender: SANOFI AVENTIS
  Company Number: US-SA-SAC20230714000250

PATIENT
  Age: 6 Year
  Sex: Male

DRUGS (1)
  1. DUPIXENT [Suspect]
     Active Substance: DUPILUMAB
     Indication: Dermatitis atopic
     Dosage: 300 MG, Q4W
     Route: 058

REACTIONS (16)
  - Injection site hypoaesthesia [Unknown]
  - Sleep disorder [Unknown]
  - Eye pain [Unknown]
  - Headache [Unknown]
  - Nasopharyngitis [Unknown]
  - Skin exfoliation [Unknown]
  - Eczema [Unknown]
  - Rash [Unknown]
  - Dry skin [Unknown]
  - Pruritus [Unknown]
  - Lack of injection site rotation [Unknown]
  - Dermatitis atopic [Recovered/Resolved]
  - Dry skin [Recovered/Resolved]
  - Skin fissures [Recovered/Resolved]
  - Skin discolouration [Recovered/Resolved]
  - Product dose omission issue [Unknown]

NARRATIVE: CASE EVENT DATE: 20230101
